FAERS Safety Report 22749677 (Version 4)
Quarter: 2023Q4

REPORT INFORMATION
  Report Type: Spontaneous
  Country: US (occurrence: US)
  Receive Date: 20230726
  Receipt Date: 20231228
  Transmission Date: 20240109
  Serious: No
  Sender: FDA-Public Use
  Company Number: US-SA-SAC20230724000357

PATIENT
  Age: 31 Year
  Sex: Female

DRUGS (1)
  1. DUPIXENT [Suspect]
     Active Substance: DUPILUMAB
     Indication: Dermatitis allergic
     Dosage: 300 MG, QOW
     Route: 058
     Dates: start: 20230228, end: 2023

REACTIONS (10)
  - Sleep disorder [Unknown]
  - Discomfort [Unknown]
  - Stress [Unknown]
  - Pruritus [Unknown]
  - Eye irritation [Unknown]
  - Injection site reaction [Unknown]
  - Rash [Unknown]
  - Dermatitis allergic [Recovering/Resolving]
  - Condition aggravated [Unknown]
  - Drug ineffective [Unknown]

NARRATIVE: CASE EVENT DATE: 20230101
